FAERS Safety Report 10187109 (Version 1)
Quarter: 2014Q2

REPORT INFORMATION
  Report Type: Spontaneous
  Country: FR (occurrence: FR)
  Receive Date: 20140522
  Receipt Date: 20140522
  Transmission Date: 20141212
  Serious: Yes (Hospitalization)
  Sender: FDA-Public Use
  Company Number: FR-ASTRAZENECA-2014SE34277

PATIENT
  Age: 85 Year
  Sex: Female

DRUGS (8)
  1. INEXIUM [Suspect]
     Route: 048
  2. INEXIUM [Suspect]
     Route: 048
  3. ARICEPT [Suspect]
     Indication: DEMENTIA ALZHEIMER^S TYPE
     Route: 048
     Dates: start: 200511, end: 20140409
  4. SEROPRAM [Suspect]
     Route: 048
     Dates: start: 200605, end: 20140413
  5. EBIXA [Suspect]
     Indication: DEMENTIA ALZHEIMER^S TYPE
     Route: 048
     Dates: start: 201010
  6. EBIXA [Suspect]
     Indication: DEMENTIA ALZHEIMER^S TYPE
     Route: 048
  7. SOLUPRED [Suspect]
     Route: 048
     Dates: end: 201404
  8. ROCEPHINE [Concomitant]

REACTIONS (7)
  - Loss of consciousness [Unknown]
  - Bronchitis [Unknown]
  - Aortic valve stenosis [Unknown]
  - Syncope [Unknown]
  - Malaise [Recovered/Resolved]
  - Diarrhoea [Unknown]
  - Vomiting [Unknown]
